FAERS Safety Report 5885001-9 (Version None)
Quarter: 2008Q3

REPORT INFORMATION
  Report Type: 
  Country: None (occurrence: None)
  Receive Date: 20080916
  Receipt Date: 20080911
  Transmission Date: 20090109
  Serious: Yes (Life-Threatening, Hospitalization)
  Sender: FDA-Public Use
  Company Number: FR-ABBOTT-08P-056-0474647-00

PATIENT
  Sex: Female

DRUGS (6)
  1. DEPAKOTE [Suspect]
     Indication: DRUG USE FOR UNKNOWN INDICATION
     Route: 048
     Dates: start: 20080624, end: 20080720
  2. ZOLPIDEM [Suspect]
     Indication: DRUG USE FOR UNKNOWN INDICATION
     Route: 048
     Dates: start: 20080623, end: 20080728
  3. CITALOPRAM HYDROBROMIDE [Suspect]
     Indication: DRUG USE FOR UNKNOWN INDICATION
     Route: 048
     Dates: start: 20080620, end: 20080728
  4. DIHYDROERGOTAMINE MESYLATE [Suspect]
     Indication: DRUG USE FOR UNKNOWN INDICATION
     Route: 048
     Dates: start: 20080625, end: 20080720
  5. ACAMPROSATE [Suspect]
     Indication: DRUG USE FOR UNKNOWN INDICATION
     Route: 048
     Dates: start: 20080620, end: 20080728
  6. DIAZEPAM [Suspect]
     Indication: DRUG USE FOR UNKNOWN INDICATION
     Route: 048
     Dates: start: 20080620, end: 20080728

REACTIONS (9)
  - ANTICONVULSANT DRUG LEVEL DECREASED [None]
  - EOSINOPHIL COUNT INCREASED [None]
  - HEPATIC NECROSIS [None]
  - HEPATITIS FULMINANT [None]
  - HEPATOCELLULAR INJURY [None]
  - JAUNDICE [None]
  - LIVER TRANSPLANT [None]
  - NAUSEA [None]
  - VOMITING [None]
